FAERS Safety Report 9323643 (Version 3)
Quarter: 2013Q2

REPORT INFORMATION
  Report Type: Report from Study
  Country: US (occurrence: US)
  Receive Date: 20130603
  Receipt Date: 20130621
  Transmission Date: 20140414
  Serious: Yes (Death, Hospitalization)
  Sender: FDA-Public Use
  Company Number: PHHO2013US007122

PATIENT
  Age: 38 Year
  Sex: Male
  Weight: 70.3 kg

DRUGS (7)
  1. BEZ235 [Suspect]
     Indication: COLORECTAL ADENOCARCINOMA
     Dosage: 800 MG, QD
     Route: 048
     Dates: start: 20130515, end: 20130520
  2. AFINITOR [Suspect]
     Indication: COLORECTAL ADENOCARCINOMA
     Dosage: 2.5 MG, QD
     Route: 048
     Dates: start: 20130515, end: 20130520
  3. DURAGESIC [Concomitant]
     Dosage: 100 MCG/HR PATCH, Q72H
     Route: 062
  4. KAYEXALATE [Concomitant]
     Dosage: 30 G, ONCE/SINGLE
     Route: 048
  5. DILAUDID [Concomitant]
     Dosage: 1-2 MG Q2H/PRN
     Route: 042
  6. MARINOL [Concomitant]
     Dosage: 2.5 MG, TID PRN
     Route: 048
  7. LISINOPRIL [Concomitant]
     Dosage: UNK

REACTIONS (4)
  - Renal failure acute [Fatal]
  - Tumour lysis syndrome [Fatal]
  - Sepsis [Fatal]
  - Hepatorenal failure [Unknown]
